FAERS Safety Report 22135550 (Version 5)
Quarter: 2024Q3

REPORT INFORMATION
  Report Type: Spontaneous
  Country: US (occurrence: US)
  Receive Date: 20230324
  Receipt Date: 20240718
  Transmission Date: 20241016
  Serious: No
  Sender: SANOFI AVENTIS
  Company Number: US-SA-SAC20230322001084

PATIENT
  Age: 17 Year
  Sex: Female
  Weight: 79.37 kg

DRUGS (2)
  1. DUPIXENT [Suspect]
     Active Substance: DUPILUMAB
     Indication: Dermatitis atopic
     Dosage: UNK UNK, 1X
     Route: 058
     Dates: start: 20230315, end: 20230315
  2. DUPIXENT [Suspect]
     Active Substance: DUPILUMAB
     Dosage: 300 MG, QOW
     Route: 058
     Dates: start: 202303

REACTIONS (10)
  - Vulvovaginal mycotic infection [Unknown]
  - Rash vesicular [Unknown]
  - Rash [Unknown]
  - Dermatitis atopic [Unknown]
  - Skin discolouration [Not Recovered/Not Resolved]
  - Dry skin [Unknown]
  - Pruritus [Unknown]
  - Erythema [Unknown]
  - Drug ineffective [Unknown]
  - Therapeutic response decreased [Unknown]

NARRATIVE: CASE EVENT DATE: 20230101
